FAERS Safety Report 11237819 (Version 8)
Quarter: 2016Q1

REPORT INFORMATION
  Report Type: Report from Study
  Country: US (occurrence: US)
  Receive Date: 20150703
  Receipt Date: 20160220
  Transmission Date: 20160525
  Serious: Yes (Other)
  Sender: FDA-Public Use
  Company Number: PHEH2015US005000

PATIENT
  Age: 45 Year
  Sex: Female
  Weight: 84 kg

DRUGS (17)
  1. NYSTATIN. [Concomitant]
     Active Substance: NYSTATIN
     Indication: PRODUCT USED FOR UNKNOWN INDICATION
     Dosage: BID (10000-0.1 UNIT/GM % CREAM APPLICATION TO AFFECTED AREA)
     Route: 065
     Dates: start: 20150501
  2. AFINITOR [Suspect]
     Active Substance: EVEROLIMUS
     Dosage: UNK
     Route: 065
     Dates: start: 201503
  3. KEFLEX [Concomitant]
     Active Substance: CEPHALEXIN
     Indication: FOLLICULITIS
     Route: 065
     Dates: start: 20150501
  4. CLOBETASOL PROPIONATE. [Concomitant]
     Active Substance: CLOBETASOL PROPIONATE
     Indication: PRODUCT USED FOR UNKNOWN INDICATION
     Dosage: 0.05 %, UNK
     Route: 065
  5. AFINITOR [Suspect]
     Active Substance: EVEROLIMUS
     Indication: ANGIOMYOLIPOMA
     Dosage: 10 MG, QD (DAILY)
     Route: 048
     Dates: start: 20150223
  6. FLUOCINOLONE [Concomitant]
     Active Substance: FLUOCINOLONE
     Indication: PRODUCT USED FOR UNKNOWN INDICATION
     Dosage: 1 APPLICATION DIRECTED
     Route: 065
  7. CALCIUM [Concomitant]
     Active Substance: CALCIUM
     Indication: PRODUCT USED FOR UNKNOWN INDICATION
     Dosage: UNK UNK, QD
     Route: 065
  8. PRILOSEC [Concomitant]
     Active Substance: OMEPRAZOLE MAGNESIUM
     Indication: PRODUCT USED FOR UNKNOWN INDICATION
     Dosage: 20 MG, QD
     Route: 065
  9. GLUCOTROL XL [Concomitant]
     Active Substance: GLIPIZIDE
     Indication: PRODUCT USED FOR UNKNOWN INDICATION
     Dosage: 1 DF, QD
     Route: 065
  10. MOTRIN [Concomitant]
     Active Substance: IBUPROFEN
     Indication: PRODUCT USED FOR UNKNOWN INDICATION
     Dosage: 200 MG, PRN
     Route: 065
  11. AFINITOR [Suspect]
     Active Substance: EVEROLIMUS
     Dosage: 10 MG, QD
     Route: 048
  12. L-LYSINE [Concomitant]
     Active Substance: LYSINE
     Indication: PRODUCT USED FOR UNKNOWN INDICATION
     Dosage: 1000 MG, QD
     Route: 065
  13. MAGNESIUM [Concomitant]
     Active Substance: MAGNESIUM
     Indication: PRODUCT USED FOR UNKNOWN INDICATION
     Dosage: QD
     Route: 065
  14. CITALOPRAM [Concomitant]
     Active Substance: CITALOPRAM HYDROBROMIDE
     Indication: PRODUCT USED FOR UNKNOWN INDICATION
     Dosage: 20 MG, QD
     Route: 048
  15. TRIAMCINOLONE [Concomitant]
     Active Substance: TRIAMCINOLONE
     Indication: PRODUCT USED FOR UNKNOWN INDICATION
     Dosage: 10000-0.1 UNIT/GM % CREAM APPLICATION TO AFFECTED AREA
     Route: 065
     Dates: start: 20150501
  16. ASPIRIN. [Concomitant]
     Active Substance: ASPIRIN
     Indication: PRODUCT USED FOR UNKNOWN INDICATION
     Route: 065
  17. KEPAX [Concomitant]
     Indication: PRODUCT USED FOR UNKNOWN INDICATION
     Route: 065

REACTIONS (27)
  - Pneumocystis jirovecii pneumonia [Unknown]
  - Microalbuminuria [Unknown]
  - Nasopharyngitis [Unknown]
  - Constipation [Unknown]
  - Peripheral swelling [Recovering/Resolving]
  - Hypersensitivity [Unknown]
  - Blood glucose increased [Recovering/Resolving]
  - Blood urine present [Not Recovered/Not Resolved]
  - Neck pain [Unknown]
  - Urinary tract infection [Unknown]
  - Stomatitis [Recovering/Resolving]
  - Oropharyngeal pain [Recovering/Resolving]
  - Cataract [Unknown]
  - Exostosis [Unknown]
  - Sinusitis [Unknown]
  - Fatigue [Unknown]
  - Liver function test increased [Not Recovered/Not Resolved]
  - Foot deformity [Unknown]
  - Haemorrhage [Unknown]
  - Decreased appetite [Unknown]
  - Sinus congestion [Unknown]
  - Osteopenia [Unknown]
  - Faeces hard [Unknown]
  - Headache [Unknown]
  - Cough [Unknown]
  - Ear pain [Unknown]
  - Chest pain [Unknown]

NARRATIVE: CASE EVENT DATE: 20150225
